FAERS Safety Report 9414526 (Version 1)
Quarter: 2013Q3

REPORT INFORMATION
  Report Type: Spontaneous
  Country: DE (occurrence: DE)
  Receive Date: 20130717
  Receipt Date: 20130717
  Transmission Date: 20140515
  Serious: Yes (Other)
  Sender: FDA-Public Use
  Company Number: GER/GER/13/0031692

PATIENT
  Age: 85 Year
  Sex: Male
  Weight: 77 kg

DRUGS (7)
  1. CIPROFLOXACIN [Suspect]
     Indication: PROSTATITIS
     Route: 048
     Dates: start: 20081128, end: 20081207
  2. RAMIPRIL (RAMIPRIL) [Concomitant]
  3. METFORMIN (METFORMIN HYDROCHLORIDE) [Concomitant]
  4. ALLOPURINOL [Concomitant]
  5. SIMVASTATIN (SIMVASTATIN) [Concomitant]
  6. CRATAEGUTT NOVO 450 (CRATAEGUS LAEVIGATA EXTRACT) [Concomitant]
  7. MARCUMAR (PHENPROCOUMON) [Concomitant]

REACTIONS (7)
  - Nausea [None]
  - Decreased appetite [None]
  - Hyperhidrosis [None]
  - Sleep disorder [None]
  - Blood creatinine increased [None]
  - Blood urea increased [None]
  - Renal failure [None]
